FAERS Safety Report 19871826 (Version 1)
Quarter: 2021Q3

REPORT INFORMATION
  Report Type: Spontaneous
  Country: BR (occurrence: BR)
  Receive Date: 20210922
  Receipt Date: 20210922
  Transmission Date: 20211014
  Serious: Yes (Other)
  Sender: FDA-Public Use
  Company Number: BR-ABBVIE-21K-020-4089580-00

PATIENT

DRUGS (2)
  1. VENCLEXTA [Suspect]
     Active Substance: VENETOCLAX
     Indication: ACUTE MYELOID LEUKAEMIA
     Dosage: UNSPECIFIED DOSE?FIRST CYCLE
     Route: 048
     Dates: start: 202103, end: 202104
  2. VENCLEXTA [Suspect]
     Active Substance: VENETOCLAX
     Dosage: UNSPECIFIED DOSE
     Route: 048
     Dates: start: 202108

REACTIONS (2)
  - Off label use [Unknown]
  - Hepatotoxicity [Unknown]

NARRATIVE: CASE EVENT DATE: 2021
